FAERS Safety Report 8295628-5 (Version None)
Quarter: 2012Q2

REPORT INFORMATION
  Report Type: 
  Country: None (occurrence: None)
  Receive Date: 20120416
  Receipt Date: 20120416
  Transmission Date: 20120825
  Serious: Yes (Hospitalization)
  Sender: FDA-Public Use
  Company Number: None

PATIENT
  Sex: Male
  Weight: 74 kg

DRUGS (12)
  1. OXYCODONE HCL [Concomitant]
  2. PEPCID [Concomitant]
  3. DILTIAZEM HCL [Concomitant]
  4. OXYCONTIN [Concomitant]
  5. VITAMIN B-12 [Concomitant]
  6. FOLIC ACID [Concomitant]
  7. DEXAMETHASONE [Concomitant]
  8. ALIMTA [Suspect]
     Indication: SARCOMA
     Dosage: ALIMTA 736MG IV-D1/D15
     Route: 042
     Dates: start: 20120404
  9. MICARDIS [Concomitant]
  10. COLACE [Concomitant]
  11. TAXOTERE [Suspect]
     Indication: SARCOMA
     Dosage: TAXOTERE 55MG IV-D1/D15
  12. LIPITOR [Concomitant]

REACTIONS (3)
  - HYPOXIA [None]
  - PNEUMONIA [None]
  - DISEASE PROGRESSION [None]
